FAERS Safety Report 13069792 (Version 2)
Quarter: 2017Q2

REPORT INFORMATION
  Report Type: Spontaneous
  Country: US (occurrence: US)
  Receive Date: 20161228
  Receipt Date: 20170621
  Transmission Date: 20170830
  Serious: Yes (Other)
  Sender: FDA-Public Use
  Company Number: US-BAYER-2016-233782

PATIENT
  Age: 11 Year
  Sex: Male
  Weight: 27.21 kg

DRUGS (1)
  1. KOGENATE FS [Suspect]
     Active Substance: ANTIHEMOPHILIC FACTOR, HUMAN RECOMBINANT
     Indication: FACTOR VIII DEFICIENCY
     Dosage: 850-1150 TIW/ PRN
     Route: 042
     Dates: start: 20160803

REACTIONS (2)
  - Haemarthrosis [None]
  - Treatment noncompliance [None]

NARRATIVE: CASE EVENT DATE: 20161202
